FAERS Safety Report 25148649 (Version 3)
Quarter: 2025Q2

REPORT INFORMATION
  Report Type: Spontaneous
  Country: US (occurrence: US)
  Receive Date: 20250402
  Receipt Date: 20250501
  Transmission Date: 20250717
  Serious: Yes (Hospitalization)
  Sender: ROCHE
  Company Number: US-ROCHE-10000246463

PATIENT
  Sex: Female

DRUGS (4)
  1. ITOVEBI [Suspect]
     Active Substance: INAVOLISIB
     Indication: Breast cancer
     Route: 048
  2. ITOVEBI [Suspect]
     Active Substance: INAVOLISIB
     Indication: Renal failure
  3. PALBOCICLIB [Suspect]
     Active Substance: PALBOCICLIB
     Indication: Renal failure
     Route: 065
  4. FULVESTRANT [Suspect]
     Active Substance: FULVESTRANT
     Indication: Renal failure
     Route: 065

REACTIONS (1)
  - Hyperglycaemia [Unknown]
